FAERS Safety Report 10466723 (Version 1)
Quarter: 2014Q2

REPORT INFORMATION
  Report Type: Spontaneous
  Country: US (occurrence: None)
  Receive Date: 20140605
  Receipt Date: 20140605
  Transmission Date: 20141212
  Serious: No
  Sender: FDA-Public Use
  Company Number: US-145512

PATIENT
  Age: 44 Year
  Sex: Female
  Weight: 66 kg

DRUGS (3)
  1. BOTULISM ANTITOXIN [Suspect]
     Indication: BOTULISM
     Dates: start: 20140116, end: 20140117
  2. LABETALOL [Concomitant]
  3. TRAZODONE [Concomitant]

REACTIONS (2)
  - Blood pressure decreased [None]
  - Heart rate decreased [None]
